FAERS Safety Report 9995784 (Version 2)
Quarter: 2014Q2

REPORT INFORMATION
  Report Type: Spontaneous
  Country: US (occurrence: US)
  Receive Date: 20140311
  Receipt Date: 20140401
  Transmission Date: 20141212
  Serious: No
  Sender: FDA-Public Use
  Company Number: US-TEVA-467665USA

PATIENT
  Age: 23 Year
  Sex: Female
  Weight: 71.28 kg

DRUGS (1)
  1. PARAGARD 380A [Suspect]
     Indication: CONTRACEPTION
     Route: 015
     Dates: start: 20140121, end: 20140304

REACTIONS (4)
  - Menorrhagia [Recovered/Resolved]
  - Dysmenorrhoea [Recovered/Resolved]
  - Medical device complication [Recovered/Resolved]
  - Device expulsion [Recovered/Resolved]
